FAERS Safety Report 5564744-0 (Version None)
Quarter: 2007Q4

REPORT INFORMATION
  Report Type: 
  Country: None (occurrence: None)
  Receive Date: 20071213
  Receipt Date: 20071213
  Transmission Date: 20080405
  Serious: Yes (Other)
  Sender: FDA-Public Use
  Company Number: None

PATIENT
  Age: 56 Year
  Sex: Male
  Weight: 89.8122 kg

DRUGS (1)
  1. ZICAM   ZICUM ACETICUM X2 ZICUM GLUCONICUM    ZICAM LLC [Suspect]
     Indication: NASOPHARYNGITIS
     Dosage: 1 TABLET EVERY 3 HOURS PO
     Route: 048
     Dates: start: 20071206, end: 20071211

REACTIONS (1)
  - AGEUSIA [None]
